FAERS Safety Report 5113634-6 (Version None)
Quarter: 2006Q3

REPORT INFORMATION
  Report Type: 
  Country: None (occurrence: None)
  Receive Date: 20060920
  Receipt Date: 20060907
  Transmission Date: 20061208
  Serious: Yes (Death, Hospitalization)
  Sender: FDA-Public Use
  Company Number: 2006090907

PATIENT
  Age: 71 Year
  Sex: Female
  Weight: 75 kg

DRUGS (4)
  1. NEURONTIN [Suspect]
     Indication: PAIN IN EXTREMITY
     Dosage: 300 MG (300 MG, 1 IN 1 D), ORAL
     Route: 048
     Dates: start: 20060621, end: 20060621
  2. TRAMADOL HCL [Suspect]
  3. OXYGEN (OXYGEN) [Concomitant]
  4. CLONAZEPAM [Suspect]

REACTIONS (5)
  - CARDIAC ARREST [None]
  - COMA [None]
  - DRUG INTERACTION [None]
  - RESPIRATORY FAILURE [None]
  - SOMNOLENCE [None]
